FAERS Safety Report 20574479 (Version 1)
Quarter: 2022Q1

REPORT INFORMATION
  Report Type: Spontaneous
  Country: US (occurrence: US)
  Receive Date: 20220309
  Receipt Date: 20220309
  Transmission Date: 20220423
  Serious: No
  Sender: FDA-Public Use
  Company Number: US-GILEAD-2022-0573090

PATIENT
  Sex: Female

DRUGS (6)
  1. DESCOVY [Suspect]
     Active Substance: EMTRICITABINE\TENOFOVIR ALAFENAMIDE FUMARATE
     Indication: HIV infection
     Dosage: 1 DOSAGE FORM, QD
     Route: 048
  2. LORATADINE [Concomitant]
     Active Substance: LORATADINE
  3. LISINOPRIL [Concomitant]
     Active Substance: LISINOPRIL
  4. LEVONORGESTREL [Concomitant]
     Active Substance: LEVONORGESTREL
  5. VITAMINS [Concomitant]
     Active Substance: VITAMINS
  6. FISH OIL [Concomitant]
     Active Substance: FISH OIL

REACTIONS (1)
  - Product use issue [Unknown]
